FAERS Safety Report 24956752 (Version 5)
Quarter: 2025Q2

REPORT INFORMATION
  Report Type: Spontaneous
  Country: CA (occurrence: CA)
  Receive Date: 20250211
  Receipt Date: 20250529
  Transmission Date: 20250717
  Serious: Yes (Hospitalization, Other)
  Sender: PFIZER
  Company Number: CA-PFIZER INC-202500024985

PATIENT
  Age: 55 Year
  Sex: Male

DRUGS (2)
  1. RUXIENCE [Suspect]
     Active Substance: RITUXIMAB-PVVR
     Indication: Granulomatosis with polyangiitis
     Route: 042
     Dates: start: 20231109, end: 20231109
  2. RUXIENCE [Suspect]
     Active Substance: RITUXIMAB-PVVR
     Route: 042
     Dates: start: 20250527

REACTIONS (7)
  - Urinary tract infection [Unknown]
  - Abdominal discomfort [Unknown]
  - Penile cancer [Recovering/Resolving]
  - Impaired healing [Not Recovered/Not Resolved]
  - Wound secretion [Not Recovered/Not Resolved]
  - Urethral discharge [Not Recovered/Not Resolved]
  - Off label use [Unknown]

NARRATIVE: CASE EVENT DATE: 20231109
